FAERS Safety Report 7738135-8 (Version None)
Quarter: 2011Q3

REPORT INFORMATION
  Report Type: 
  Country: None (occurrence: None)
  Receive Date: 20110908
  Receipt Date: 20110901
  Transmission Date: 20111222
  Serious: Yes (Hospitalization, Other)
  Sender: FDA-Public Use
  Company Number: US-ELI_LILLY_AND_COMPANY-US201103004624

PATIENT
  Sex: Male
  Weight: 78.005 kg

DRUGS (11)
  1. EFFIENT [Suspect]
     Indication: STENT PLACEMENT
     Dosage: 60 DF, LOADING DOSE
     Dates: start: 20100401
  2. EFFIENT [Suspect]
     Dosage: 10 DF, MAINTENANCE DOSE
     Dates: end: 20110116
  3. GLIPIZIDE [Concomitant]
  4. OMEPRAZOLE [Concomitant]
  5. ASPIRIN [Concomitant]
  6. FERROUS SULFATE TAB [Concomitant]
  7. LOTREL [Concomitant]
  8. HYDROCHLOROTHIAZIDE [Concomitant]
  9. NORVASC [Concomitant]
  10. ATENOLOL [Concomitant]
  11. METFORMIN HCL [Concomitant]

REACTIONS (3)
  - SMALL INTESTINAL HAEMORRHAGE [None]
  - PANCREATIC NEOPLASM [None]
  - HAEMOGLOBIN DECREASED [None]
